FAERS Safety Report 14272418 (Version 2)
Quarter: 2017Q4

REPORT INFORMATION
  Report Type: Report from Study
  Country: CL (occurrence: CL)
  Receive Date: 20171212
  Receipt Date: 20171227
  Transmission Date: 20180321
  Serious: Yes (Disabling, Other)
  Sender: FDA-Public Use
  Company Number: PHHY2017CL183395

PATIENT
  Age: 38 Year
  Sex: Female
  Weight: 52 kg

DRUGS (5)
  1. AUBAGIO [Concomitant]
     Active Substance: TERIFLUNOMIDE
     Indication: PRODUCT USED FOR UNKNOWN INDICATION
     Dosage: 1 DF, QD
     Route: 048
     Dates: start: 201409, end: 20150514
  2. GILENYA [Suspect]
     Active Substance: FINGOLIMOD HYDROCHLORIDE
     Indication: MULTIPLE SCLEROSIS
     Dosage: UNK, QD
     Route: 048
     Dates: start: 201312, end: 201407
  3. PREGALEX [Concomitant]
     Indication: NEURALGIA
     Dosage: 75 MG, UNK
     Route: 065
  4. FEMELLE [Concomitant]
     Indication: CONTRACEPTION
     Dosage: 1 DF, UNK
     Route: 065
  5. AUBAGIO [Concomitant]
     Active Substance: TERIFLUNOMIDE
     Dosage: UNK

REACTIONS (3)
  - Optic neuritis [Not Recovered/Not Resolved]
  - Visual impairment [Not Recovered/Not Resolved]
  - Visual acuity reduced [Recovered/Resolved]

NARRATIVE: CASE EVENT DATE: 201406
